FAERS Safety Report 4485406-7 (Version None)
Quarter: 2004Q4

REPORT INFORMATION
  Report Type: 
  Country: None (occurrence: None)
  Receive Date: 20041026
  Receipt Date: 20040601
  Transmission Date: 20050328
  Serious: Yes (Other)
  Sender: FDA-Public Use
  Company Number: ZA-ABBOTT-04P-143-0262677-00

PATIENT
  Sex: Female
  Weight: 68.1 kg

DRUGS (1)
  1. KLACID [Suspect]
     Indication: GINGIVITIS
     Route: 048
     Dates: start: 20040529, end: 20040531

REACTIONS (5)
  - ABDOMINAL PAIN UPPER [None]
  - HEADACHE [None]
  - NAUSEA [None]
  - PHOTOPHOBIA [None]
  - VAGINAL CANDIDIASIS [None]
